FAERS Safety Report 6751421-3 (Version None)
Quarter: 2010Q2

REPORT INFORMATION
  Report Type: 
  Country: None (occurrence: None)
  Receive Date: 20100602
  Receipt Date: 20100518
  Transmission Date: 20101027
  Serious: Yes (Life-Threatening, Hospitalization)
  Sender: FDA-Public Use
  Company Number: CA-ROCHE-595912

PATIENT
  Sex: Male
  Weight: 98 kg

DRUGS (13)
  1. PEGINTERFERON ALFA-2A [Suspect]
     Dosage: DRUG TEMPORAILY INTERRUPTED.
     Route: 058
     Dates: start: 20080626, end: 20081029
  2. PEGINTERFERON ALFA-2A [Suspect]
     Route: 058
     Dates: end: 20081116
  3. RIBAVIRIN [Suspect]
     Dosage: DOSING AMOUNT: 600 MG AM AND 800 MG PM, DRUG WAS TEMPORARILY INTERRUPTED.
     Route: 048
     Dates: start: 20080626, end: 20081029
  4. RIBAVIRIN [Suspect]
     Route: 048
     Dates: start: 20081031, end: 20081116
  5. METOPROLOL TARTRATE [Concomitant]
  6. LACTULOSE [Concomitant]
  7. LANSOPRAZOLE [Concomitant]
  8. METFORMIN HCL [Concomitant]
  9. SPIRONOLACTONE [Concomitant]
  10. SPIRONOLACTONE [Concomitant]
  11. FOLIC ACID [Concomitant]
  12. CIPRO [Concomitant]
  13. METRONIDAZOLE [Concomitant]

REACTIONS (3)
  - FALL [None]
  - HEPATIC ENCEPHALOPATHY [None]
  - LOSS OF CONSCIOUSNESS [None]
